FAERS Safety Report 12465690 (Version 1)
Quarter: 2016Q2

REPORT INFORMATION
  Report Type: Spontaneous
  Country: US (occurrence: US)
  Receive Date: 20160614
  Receipt Date: 20160614
  Transmission Date: 20160815
  Serious: No
  Sender: FDA-Public Use
  Company Number: US-GLAXOSMITHKLINE-US2016079489

PATIENT
  Age: 64 Year
  Sex: Female

DRUGS (9)
  1. SYMBICORT [Suspect]
     Active Substance: BUDESONIDE\FORMOTEROL FUMARATE DIHYDRATE
     Indication: CHRONIC OBSTRUCTIVE PULMONARY DISEASE
     Dosage: 2 PUFF(S), BID
     Route: 055
     Dates: start: 20141101, end: 201604
  2. INCRUSE ELLIPTA [Suspect]
     Active Substance: UMECLIDINIUM BROMIDE
     Indication: CHRONIC OBSTRUCTIVE PULMONARY DISEASE
     Dosage: 1 PUFF(S), QD
     Route: 055
     Dates: start: 201601, end: 20160529
  3. INCRUSE ELLIPTA [Suspect]
     Active Substance: UMECLIDINIUM BROMIDE
     Indication: MULTIPLE ALLERGIES
  4. MOTRIN [Concomitant]
     Active Substance: IBUPROFEN
  5. QUINAPRIL. [Concomitant]
     Active Substance: QUINAPRIL
  6. XANAX [Concomitant]
     Active Substance: ALPRAZOLAM
  7. NORCO [Concomitant]
     Active Substance: ACETAMINOPHEN\HYDROCODONE BITARTRATE
  8. SYMBICORT [Suspect]
     Active Substance: BUDESONIDE\FORMOTEROL FUMARATE DIHYDRATE
     Indication: MULTIPLE ALLERGIES
  9. IMITREX [Concomitant]
     Active Substance: SUMATRIPTAN SUCCINATE

REACTIONS (7)
  - Insomnia [Recovered/Resolved]
  - Visual acuity reduced [Recovering/Resolving]
  - Migraine [Not Recovered/Not Resolved]
  - Drug interaction [Unknown]
  - Muscle spasms [Recovered/Resolved]
  - Constipation [Recovered/Resolved]
  - Photophobia [Recovering/Resolving]

NARRATIVE: CASE EVENT DATE: 20160101
